FAERS Safety Report 8538938-6 (Version None)
Quarter: 2012Q3

REPORT INFORMATION
  Report Type: 
  Country: None (occurrence: None)
  Receive Date: 20120726
  Receipt Date: 20120717
  Transmission Date: 20120928
  Serious: Yes (Other)
  Sender: FDA-Public Use
  Company Number: CA-JNJFOC-20120709435

PATIENT
  Sex: Female
  Weight: 66 kg

DRUGS (3)
  1. REMICADE [Suspect]
     Indication: COLITIS
     Route: 042
     Dates: start: 20120717
  2. REMICADE [Suspect]
     Route: 042
     Dates: start: 20060101
  3. INSULIN [Concomitant]
     Indication: DIABETES MELLITUS
     Route: 065

REACTIONS (5)
  - HYPERHIDROSIS [None]
  - SOMNOLENCE [None]
  - BLOOD PRESSURE INCREASED [None]
  - PULSE ABNORMAL [None]
  - INFUSION RELATED REACTION [None]
